FAERS Safety Report 4655616-4 (Version None)
Quarter: 2005Q2

REPORT INFORMATION
  Report Type: 
  Country: None (occurrence: None)
  Receive Date: 20050505
  Receipt Date: 20050420
  Transmission Date: 20051028
  Serious: Yes (Disabling)
  Sender: FDA-Public Use
  Company Number: 200410997

PATIENT
  Age: 72 Year
  Sex: Female
  Weight: 54.4316 kg

DRUGS (9)
  1. LUMIGAN 0.03% [Suspect]
     Indication: GLAUCOMA
     Dosage: 2 DROP QD EYE
     Route: 006
     Dates: start: 20040708, end: 20041128
  2. PROPYLTHIOURACIL [Concomitant]
  3. BETOPTIC [Concomitant]
  4. ALBUTEROL [Concomitant]
  5. MINERAL TAB [Concomitant]
  6. VITAMINS [Concomitant]
  7. CALCIUM GLUCONATE [Concomitant]
  8. EXCEDRIN (MIGRAINE) [Concomitant]
  9. ALAVERT [Concomitant]

REACTIONS (35)
  - ARTHRALGIA [None]
  - ASTHENIA [None]
  - BACK PAIN [None]
  - BALANCE DISORDER [None]
  - BURNING SENSATION [None]
  - CARDIAC MURMUR [None]
  - CHEST PAIN [None]
  - DIPLOPIA [None]
  - DISTURBANCE IN ATTENTION [None]
  - DIZZINESS [None]
  - DYSPEPSIA [None]
  - EXTRASYSTOLES [None]
  - EYE PAIN [None]
  - EYELID DISORDER [None]
  - HEADACHE [None]
  - HEART RATE IRREGULAR [None]
  - HYPERTRICHOSIS [None]
  - HYPOAESTHESIA [None]
  - NAUSEA [None]
  - OCULAR HYPERAEMIA [None]
  - OXYGEN SATURATION DECREASED [None]
  - PAIN [None]
  - PAIN IN EXTREMITY [None]
  - PAIN IN JAW [None]
  - PALPITATIONS [None]
  - PARAESTHESIA [None]
  - PHOTOSENSITIVITY REACTION [None]
  - PRURITUS [None]
  - RESPIRATORY RATE DECREASED [None]
  - SKIN DISCOLOURATION [None]
  - SKIN WRINKLING [None]
  - TINNITUS [None]
  - TREMOR [None]
  - VISION BLURRED [None]
  - VISUAL ACUITY REDUCED [None]
